FAERS Safety Report 6436157-0 (Version None)
Quarter: 2009Q4

REPORT INFORMATION
  Report Type: 
  Country: None (occurrence: None)
  Receive Date: 20091110
  Receipt Date: 20070921
  Transmission Date: 20100525
  Serious: No
  Sender: FDA-Public Use
  Company Number: AEUSA200700218

PATIENT
  Sex: Female

DRUGS (2)
  1. IMMUNE GLOBULIN (HUMAN) [Suspect]
     Indication: THROMBOCYTOPENIA
     Dosage: 1 G/KG;QW;IV
     Route: 042
  2. PREDNISONE [Concomitant]

REACTIONS (1)
  - RASH [None]
